FAERS Safety Report 16504823 (Version 1)
Quarter: 2019Q3

REPORT INFORMATION
  Report Type: Spontaneous
  Country: BE (occurrence: BE)
  Receive Date: 20190701
  Receipt Date: 20190701
  Transmission Date: 20191004
  Serious: Yes (Hospitalization, Other)
  Sender: FDA-Public Use
  Company Number: BE-MYLANLABS-2018M1027258

PATIENT
  Age: 54 Year
  Sex: Male

DRUGS (9)
  1. METHYLPREDNISOLONE. [Suspect]
     Active Substance: METHYLPREDNISOLONE
     Indication: HYPERTHYROIDISM
     Dosage: 16 MILLIGRAM
     Route: 065
  2. PROPYLTHIOURACIL. [Suspect]
     Active Substance: PROPYLTHIOURACIL
     Dosage: DOSE INCREASED ON DAY 39 AFTER THE DIAGNOSIS OF HYPERTHYROIDISM
     Route: 065
  3. AMIODARONE [Suspect]
     Active Substance: AMIODARONE
     Indication: VENTRICULAR TACHYCARDIA
     Dosage: 200 MILLIGRAM, QD
     Route: 065
  4. PROPRANOLOL [Suspect]
     Active Substance: PROPRANOLOL HYDROCHLORIDE
     Indication: VENTRICULAR TACHYCARDIA
     Dosage: STARTED ON DAY 30 AFTER THE DIAGNOSIS OF HYPERTHYROIDISM
     Route: 065
  5. DIGOXIN. [Suspect]
     Active Substance: DIGOXIN
     Indication: VENTRICULAR TACHYCARDIA
     Dosage: .07 MILLIGRAM
     Route: 065
  6. METHYLPREDNISOLONE. [Suspect]
     Active Substance: METHYLPREDNISOLONE
     Dosage: DOSE INCREASED ON DAY 39 AFTER THE DIAGNOSIS OF HYPERTHYROIDISM
     Route: 065
  7. PROPYLTHIOURACIL. [Suspect]
     Active Substance: PROPYLTHIOURACIL
     Indication: HYPERTHYROIDISM
     Dosage: 100 MILLIGRAM
     Route: 065
  8. METOPROLOL. [Concomitant]
     Active Substance: METOPROLOL
     Indication: VENTRICULAR TACHYCARDIA
     Dosage: 40 MILLIGRAM
     Route: 065
  9. PROPRANOLOL [Suspect]
     Active Substance: PROPRANOLOL HYDROCHLORIDE
     Dosage: THREE TIMES A DAY; DOSE INCREASED ON DAY 39 AFTER THE DIAGNOSIS OF HYPERTHYROIDISM
     Route: 065

REACTIONS (4)
  - Urine iodine increased [Recovering/Resolving]
  - Goitre [Recovered/Resolved]
  - Hyperthyroidism [Recovered/Resolved]
  - Drug ineffective [Recovering/Resolving]
